FAERS Safety Report 26132292 (Version 1)
Quarter: 2025Q4

REPORT INFORMATION
  Report Type: Spontaneous
  Country: US (occurrence: US)
  Receive Date: 20251208
  Receipt Date: 20251208
  Transmission Date: 20260117
  Serious: Yes (Other)
  Sender: ALEXION PHARMACEUTICALS
  Company Number: US-AstraZeneca-CH-01007676A

PATIENT
  Sex: Female

DRUGS (1)
  1. BRILINTA [Suspect]
     Active Substance: TICAGRELOR
     Indication: Stent placement
     Dosage: UNK
     Route: 065

REACTIONS (3)
  - Angina pectoris [Recovered/Resolved]
  - Dyspnoea [Recovered/Resolved]
  - Movement disorder [Recovered/Resolved]
